FAERS Safety Report 12947648 (Version 2)
Quarter: 2017Q4

REPORT INFORMATION
  Report Type: Report from Study
  Country: JP (occurrence: JP)
  Receive Date: 20161116
  Receipt Date: 20171201
  Transmission Date: 20180320
  Serious: Yes (Other)
  Sender: FDA-Public Use
  Company Number: JP-PFIZER INC-2016524650

PATIENT
  Age: 27 Year
  Sex: Male
  Weight: 51.9 kg

DRUGS (25)
  1. GASCON [Concomitant]
     Active Substance: DIMETHICONE
     Indication: ENTEROCOLITIS VIRAL
  2. LANSOPRAZOLE. [Suspect]
     Active Substance: LANSOPRAZOLE
     Indication: VOMITING
  3. ZYVOX [Suspect]
     Active Substance: LINEZOLID
     Dosage: UNK
     Route: 048
  4. DELTYBA [Suspect]
     Active Substance: DELAMANID
     Indication: PULMONARY TUBERCULOSIS
     Dosage: 200 MG, DAILY
     Route: 048
     Dates: start: 20151027, end: 20170612
  5. PYRAZINAMIDE. [Suspect]
     Active Substance: PYRAZINAMIDE
     Indication: TUBERCULOSIS
     Dosage: 1300 MG, DAILY
     Route: 048
     Dates: start: 20150828, end: 20170612
  6. GASCON [Concomitant]
     Active Substance: DIMETHICONE
     Indication: NAUSEA
     Dosage: UNK
     Route: 048
     Dates: start: 20151122, end: 20160205
  7. ZOLPIDEM TARTRATE. [Concomitant]
     Active Substance: ZOLPIDEM TARTRATE
     Indication: INSOMNIA
     Dosage: UNK
     Route: 048
     Dates: start: 20151109, end: 20151110
  8. ISONIAZID. [Concomitant]
     Active Substance: ISONIAZID
     Indication: TUBERCULOSIS
     Dosage: UNK
     Route: 048
     Dates: start: 20150828, end: 201510
  9. ETHAMBUTOL HYDROCHLORIDE. [Concomitant]
     Active Substance: ETHAMBUTOL HYDROCHLORIDE
     Indication: TUBERCULOSIS
     Dosage: UNK
     Route: 048
     Dates: start: 20150828, end: 201510
  10. RISPERIDONE. [Concomitant]
     Active Substance: RISPERIDONE
     Indication: INSOMNIA
     Dosage: UNK
     Route: 048
     Dates: start: 20151211, end: 20151212
  11. AMINOSALICYLATE CALCIUM [Suspect]
     Active Substance: AMINOSALICYLATE CALCIUM
     Indication: TUBERCULOSIS
     Dosage: 10 G, DAILY
     Route: 048
     Dates: start: 20151023, end: 20170612
  12. GASCON [Concomitant]
     Active Substance: DIMETHICONE
     Indication: ABDOMINAL PAIN UPPER
  13. CYCLOSERINE. [Suspect]
     Active Substance: CYCLOSERINE
     Indication: TUBERCULOSIS
     Dosage: 500 MG, DAILY
     Route: 048
     Dates: start: 20151023, end: 20151208
  14. ACETAMINOPHEN. [Suspect]
     Active Substance: ACETAMINOPHEN
     Indication: HEADACHE
     Dosage: 500 MG, 1X/DAY
     Route: 048
     Dates: start: 20151108, end: 20151116
  15. ETHIONAMIDE [Suspect]
     Active Substance: ETHIONAMIDE
     Indication: TUBERCULOSIS
     Dosage: 600 MG, DAILY
     Route: 048
     Dates: start: 20151023, end: 20170612
  16. ACETAMINOPHEN. [Suspect]
     Active Substance: ACETAMINOPHEN
     Dosage: 500 MG, DAILY
     Route: 048
     Dates: start: 20151212, end: 20151213
  17. KANAMYCIN SULFATE [Concomitant]
     Active Substance: KANAMYCIN SULFATE
     Indication: TUBERCULOSIS
     Dosage: UNK
     Dates: start: 20151023, end: 20160506
  18. GASCON [Concomitant]
     Active Substance: DIMETHICONE
     Indication: VOMITING
  19. ESOMEPRAZOLE MAGNESIUM. [Concomitant]
     Active Substance: ESOMEPRAZOLE MAGNESIUM
     Indication: ABDOMINAL PAIN UPPER
     Dosage: UNK
     Route: 048
     Dates: start: 20151122, end: 20151127
  20. LANSOPRAZOLE. [Suspect]
     Active Substance: LANSOPRAZOLE
     Indication: NAUSEA
     Dosage: 30 MG, DAILY
     Route: 048
     Dates: start: 20151205, end: 20151218
  21. METOCLOPRAMIDE. [Suspect]
     Active Substance: METOCLOPRAMIDE
     Indication: ENTEROCOLITIS VIRAL
     Dosage: 15 MG, UNK
     Route: 048
     Dates: start: 20151109, end: 20160205
  22. LINEZOLID. [Suspect]
     Active Substance: LINEZOLID
     Indication: TUBERCULOSIS
     Dosage: 600 MG, DAILY
     Route: 048
     Dates: start: 20151026, end: 20151208
  23. ACETAMINOPHEN. [Suspect]
     Active Substance: ACETAMINOPHEN
     Indication: NECK PAIN
     Dosage: 500 MG, DAILY
     Route: 048
     Dates: start: 20151203, end: 20161204
  24. RIFAMPICIN [Concomitant]
     Active Substance: RIFAMPIN
     Indication: TUBERCULOSIS
     Dosage: UNK
     Route: 048
     Dates: start: 20150828, end: 201510
  25. LOXOPROFEN SODIUM [Concomitant]
     Active Substance: LOXOPROFEN SODIUM
     Indication: NECK PAIN
     Dosage: UNK
     Route: 048
     Dates: start: 20151205, end: 20151205

REACTIONS (17)
  - Arrhythmia supraventricular [Not Recovered/Not Resolved]
  - Nausea [Recovered/Resolved]
  - Insomnia [Recovered/Resolved]
  - Vomiting [Recovered/Resolved]
  - Neck pain [Recovered/Resolved]
  - Enterocolitis viral [Recovered/Resolved]
  - Pulmonary mass [Recovering/Resolving]
  - Depressed mood [Recovered/Resolved]
  - Headache [Recovered/Resolved]
  - Abdominal pain upper [Recovered/Resolved]
  - Platelet count increased [Recovered/Resolved]
  - Insomnia [Recovering/Resolving]
  - Vomiting [Recovered/Resolved]
  - Vomiting [Unknown]
  - Platelet count increased [Recovering/Resolving]
  - Headache [Recovered/Resolved]
  - Rhinorrhoea [Recovered/Resolved]

NARRATIVE: CASE EVENT DATE: 201511
